FAERS Safety Report 5042277-8 (Version None)
Quarter: 2006Q2

REPORT INFORMATION
  Report Type: 
  Country: None (occurrence: None)
  Receive Date: 20060627
  Receipt Date: 20060614
  Transmission Date: 20061013
  Serious: Yes (Hospitalization)
  Sender: FDA-Public Use
  Company Number: 146256USA

PATIENT
  Age: 62 Year
  Sex: Male

DRUGS (20)
  1. VINCRISTINE [Suspect]
     Indication: MANTLE CELL LYMPHOMA RECURRENT
     Dates: start: 20030707, end: 20030716
  2. VINCRISTINE [Suspect]
     Indication: MANTLE CELL LYMPHOMA REFRACTORY
     Dates: start: 20030707, end: 20030716
  3. DOXORUBICIN HCL [Suspect]
     Indication: MANTLE CELL LYMPHOMA RECURRENT
     Dates: start: 20030707, end: 20030716
  4. DOXORUBICIN HCL [Suspect]
     Indication: MANTLE CELL LYMPHOMA REFRACTORY
     Dates: start: 20030707, end: 20030716
  5. GENASENSE [Suspect]
     Indication: MANTLE CELL LYMPHOMA RECURRENT
     Dates: start: 20030707, end: 20030716
  6. GENASENSE [Suspect]
     Indication: MANTLE CELL LYMPHOMA REFRACTORY
     Dates: start: 20030707, end: 20030716
  7. RITUXIMAB [Suspect]
     Indication: MANTLE CELL LYMPHOMA RECURRENT
     Dates: start: 20030707, end: 20030716
  8. RITUXIMAB [Suspect]
     Indication: MANTLE CELL LYMPHOMA REFRACTORY
     Dates: start: 20030707, end: 20030716
  9. CYCLOPHOSPHAMIDE [Suspect]
     Indication: MANTLE CELL LYMPHOMA RECURRENT
     Dates: start: 20030707, end: 20030716
  10. CYCLOPHOSPHAMIDE [Suspect]
     Indication: MANTLE CELL LYMPHOMA REFRACTORY
     Dates: start: 20030707, end: 20030716
  11. PREDNISONE [Suspect]
     Indication: MANTLE CELL LYMPHOMA RECURRENT
     Dates: start: 20030707, end: 20030716
  12. PREDNISONE [Suspect]
     Indication: MANTLE CELL LYMPHOMA REFRACTORY
     Dates: start: 20030707, end: 20030716
  13. SIMVASTATIN [Concomitant]
  14. ACETYLSALICYLIC ACID SRT [Concomitant]
  15. CALCIUM CARBONATE [Concomitant]
  16. DEXAMETHASONE TAB [Concomitant]
  17. DIPHENHYDRAMINE HCL [Concomitant]
  18. ONDANSETRON HCL [Concomitant]
  19. PANTOPRAZOLE [Concomitant]
  20. NEULASTA [Concomitant]

REACTIONS (9)
  - COUGH [None]
  - DEHYDRATION [None]
  - DISSEMINATED INTRAVASCULAR COAGULATION [None]
  - DYSPNOEA [None]
  - FEBRILE NEUTROPENIA [None]
  - HYPOTENSION [None]
  - ORAL CANDIDIASIS [None]
  - RENAL FAILURE ACUTE [None]
  - SEPSIS [None]
